FAERS Safety Report 6217920-8 (Version None)
Quarter: 2009Q2

REPORT INFORMATION
  Report Type: 
  Country: None (occurrence: None)
  Receive Date: 20090608
  Receipt Date: 20090528
  Transmission Date: 20091009
  Serious: Yes (Hospitalization)
  Sender: FDA-Public Use
  Company Number: ES-ASTRAZENECA-2009AC01386

PATIENT
  Age: 67 Year
  Sex: Female

DRUGS (8)
  1. SYMBICORT [Suspect]
     Indication: RHEUMATOID ARTHRITIS
     Dosage: 320/9 UG INHALATION
     Route: 055
     Dates: start: 20070101
  2. LEFLUNOMIDE [Interacting]
     Dates: start: 20070101
  3. PREDNISONE [Interacting]
     Indication: RHEUMATOID ARTHRITIS
     Route: 048
     Dates: start: 20070101
  4. REMICADE [Interacting]
     Indication: RHEUMATOID ARTHRITIS
     Route: 042
     Dates: start: 20080201, end: 20090101
  5. TRAMADOL HCL [Concomitant]
  6. ACETILCISTEINA [Concomitant]
  7. DIAZEPAM [Concomitant]
  8. METAMIZOL [Concomitant]

REACTIONS (3)
  - DRUG INTERACTION [None]
  - RESPIRATORY FAILURE [None]
  - RESPIRATORY TRACT INFECTION [None]
